FAERS Safety Report 8428641-5 (Version None)
Quarter: 2012Q2

REPORT INFORMATION
  Report Type: 
  Country: None (occurrence: None)
  Receive Date: 20120606
  Receipt Date: 20120606
  Transmission Date: 20120825
  Serious: Yes (Life-Threatening)
  Sender: FDA-Public Use
  Company Number: None

PATIENT
  Age: 42 Year
  Sex: Female
  Weight: 56 kg

DRUGS (3)
  1. CARBAMAZEPINE [Concomitant]
  2. PRIMIDONE [Concomitant]
  3. FELBAMATE [Suspect]
     Indication: EPILEPSY
     Dosage: 2400 MG Q A.M. ORAL; 1200 MG Q P.M. ORAL
     Route: 048
     Dates: start: 20120120, end: 20120206

REACTIONS (5)
  - DRUG LEVEL DECREASED [None]
  - EPILEPSY [None]
  - ALTERED STATE OF CONSCIOUSNESS [None]
  - IMPAIRED DRIVING ABILITY [None]
  - PRODUCT SUBSTITUTION ISSUE [None]
